FAERS Safety Report 19660141 (Version 1)
Quarter: 2021Q3

REPORT INFORMATION
  Report Type: Spontaneous
  Country: US (occurrence: US)
  Receive Date: 20210804
  Receipt Date: 20210804
  Transmission Date: 20211014
  Serious: No
  Sender: FDA-Public Use
  Company Number: None

PATIENT
  Age: 39 Year
  Sex: Male

DRUGS (1)
  1. SOFOSBUVIR AND VELPATASVIR [Suspect]
     Active Substance: SOFOSBUVIR\VELPATASVIR
     Indication: CHRONIC HEPATITIS C
     Dosage: ?          OTHER DOSE:400?100MG;?
     Route: 048
     Dates: start: 202107

REACTIONS (4)
  - Head injury [None]
  - Road traffic accident [None]
  - Concussion [None]
  - Alcohol poisoning [None]

NARRATIVE: CASE EVENT DATE: 20210801
